FAERS Safety Report 4686168-0 (Version None)
Quarter: 2005Q2

REPORT INFORMATION
  Report Type: 
  Country: None (occurrence: None)
  Receive Date: 20050606
  Receipt Date: 20050519
  Transmission Date: 20051028
  Serious: Yes (Other)
  Sender: FDA-Public Use
  Company Number: JP_050306105

PATIENT
  Age: 61 Year
  Sex: Female
  Weight: 58 kg

DRUGS (5)
  1. EVISTA [Suspect]
     Indication: OSTEOPOROSIS POSTMENOPAUSAL
     Dosage: 60 MG/1 DAY
     Dates: start: 20041001, end: 20041015
  2. VALSARTAN [Concomitant]
  3. BAYMYCARD (NISOLDIPINE) [Concomitant]
  4. ETODOLAC [Concomitant]
  5. APLACE (TROXIPIDE) [Concomitant]

REACTIONS (3)
  - CONJUNCTIVAL HYPERAEMIA [None]
  - EYE PAIN [None]
  - RETINAL VEIN THROMBOSIS [None]
